FAERS Safety Report 5818584-5 (Version None)
Quarter: 2008Q3

REPORT INFORMATION
  Report Type: 
  Country: None (occurrence: None)
  Receive Date: 20080717
  Receipt Date: 20080711
  Transmission Date: 20090109
  Serious: Yes (Other)
  Sender: FDA-Public Use
  Company Number: 2008018229

PATIENT
  Age: 55 Year
  Sex: Female
  Weight: 65.7716 kg

DRUGS (3)
  1. ZYRTEC [Suspect]
     Indication: HYPERSENSITIVITY
     Dosage: 1 TABLET ONCE (10 MG), ORAL
     Route: 048
     Dates: start: 20080711, end: 20080711
  2. ZOLOFT [Concomitant]
  3. RELPAX [Concomitant]

REACTIONS (3)
  - ADVERSE DRUG REACTION [None]
  - DYSARTHRIA [None]
  - FEELING DRUNK [None]
